FAERS Safety Report 8013696-2 (Version None)
Quarter: 2011Q4

REPORT INFORMATION
  Report Type: 
  Country: None (occurrence: None)
  Receive Date: 20111227
  Receipt Date: 20111227
  Transmission Date: 20120403
  Serious: Yes (Hospitalization)
  Sender: FDA-Public Use
  Company Number: None

PATIENT
  Age: 86 Year
  Sex: Female

DRUGS (1)
  1. PHENYTOIN [Suspect]
     Indication: CONVULSION
     Dosage: 350 MG DAILY ORAL YEARS
     Route: 048

REACTIONS (2)
  - HYPOPHAGIA [None]
  - ANTICONVULSANT DRUG LEVEL INCREASED [None]
